FAERS Safety Report 17621986 (Version 8)
Quarter: 2022Q4

REPORT INFORMATION
  Report Type: Report from Study
  Country: US (occurrence: US)
  Receive Date: 20200403
  Receipt Date: 20221215
  Transmission Date: 20230113
  Serious: Yes (Hospitalization)
  Sender: FDA-Public Use
  Company Number: US-VIIV HEALTHCARE LIMITED-US2020GSK058128

PATIENT

DRUGS (19)
  1. DOLUTEGRAVIR [Suspect]
     Active Substance: DOLUTEGRAVIR
     Indication: HIV infection
     Dosage: 50 MG, QD, 1 TABLET
     Route: 048
     Dates: start: 20191218, end: 20200318
  2. EMTRICITABINE\TENOFOVIR ALAFENAMIDE FUMARATE [Suspect]
     Active Substance: EMTRICITABINE\TENOFOVIR ALAFENAMIDE FUMARATE
     Indication: HIV infection
     Dosage: 200 MG, QD, 1 TABLET
     Route: 048
     Dates: start: 20191218, end: 20200318
  3. LOVENOX [Concomitant]
     Active Substance: ENOXAPARIN SODIUM
     Indication: Product used for unknown indication
     Dosage: 40 MG, BID
     Route: 058
  4. ZOSYN [Concomitant]
     Active Substance: PIPERACILLIN SODIUM\TAZOBACTAM SODIUM
     Indication: Product used for unknown indication
     Dosage: 3.375 G, QID
  5. SODIUM CHLORIDE 0.9% BOLUS [Concomitant]
     Indication: Product used for unknown indication
     Dosage: 100 ML/HOURUNK
     Route: 042
  6. KEFLEX [Concomitant]
     Active Substance: CEPHALEXIN
     Indication: Product used for unknown indication
     Dosage: 1 DF, QID
  7. AUGMENTIN [Concomitant]
     Active Substance: AMOXICILLIN\CLAVULANATE POTASSIUM
     Indication: Product used for unknown indication
     Dosage: 7 ML BY MOUTH EVERY 12 (TWELVE) HOURS.
     Route: 048
  8. ATAZANAVIR [Concomitant]
     Active Substance: ATAZANAVIR
     Indication: Product used for unknown indication
  9. MACROBID [Concomitant]
     Active Substance: NITROFURANTOIN\NITROFURANTOIN MONOHYDRATE
     Indication: Product used for unknown indication
     Dosage: 100 MG, BID, FOR 7 DAYS
     Route: 048
  10. FLONASE [Concomitant]
     Active Substance: FLUTICASONE PROPIONATE
     Indication: Product used for unknown indication
     Dosage: 50 UG/ 50 MCG/ACT NASAL SPRAY, ADMINISTER 2 SPRAYS INTO EACH NOSTRIL
     Route: 045
  11. INDINAVIR [Concomitant]
     Active Substance: INDINAVIR
     Indication: Product used for unknown indication
  12. ZYRTEC [Concomitant]
     Active Substance: CETIRIZINE HYDROCHLORIDE
     Indication: Product used for unknown indication
     Dosage: 1 DF (10 MG TABLET), QD
  13. DOCOSANOL [Concomitant]
     Active Substance: DOCOSANOL
     Indication: Cheilitis
     Dosage: 1 DF APPLY I APPLICATION 4 TIMES A DAY, QD
     Route: 061
  14. VITAMIN D2 [Concomitant]
     Active Substance: ERGOCALCIFEROL
     Indication: Product used for unknown indication
     Dosage: 1 DF, 1 CAPSULE (50,000 UNITS TOTAL)  ONCE A WEEK
     Route: 048
  15. IBUPROFEN [Concomitant]
     Active Substance: IBUPROFEN
     Indication: Product used for unknown indication
     Dosage: 1 DF PRN
  16. AQUAPHOR TOPICAL (PETROLATUM) [Concomitant]
     Indication: Dry skin
     Dosage: UNK, PRN
     Route: 061
  17. KENALOG [Concomitant]
     Active Substance: TRIAMCINOLONE ACETONIDE
     Indication: Eczema
     Dosage: UNK, BID, 1 APPLICATION AS PER NEEDED
     Route: 061
  18. KENALOG [Concomitant]
     Active Substance: TRIAMCINOLONE ACETONIDE
     Indication: Folliculitis
  19. KENALOG [Concomitant]
     Active Substance: TRIAMCINOLONE ACETONIDE
     Indication: Product used for unknown indication
     Dosage: UNK, BID, 1 APPLICATION
     Route: 061

REACTIONS (1)
  - Nephrolithiasis [Recovering/Resolving]

NARRATIVE: CASE EVENT DATE: 20200318
